FAERS Safety Report 5857276-3 (Version None)
Quarter: 2008Q3

REPORT INFORMATION
  Report Type: 
  Country: None (occurrence: None)
  Receive Date: 20080822
  Receipt Date: 20080819
  Transmission Date: 20090109
  Serious: Yes (Death, Other)
  Sender: FDA-Public Use
  Company Number: 032486

PATIENT
  Age: 68 Year
  Sex: Female

DRUGS (2)
  1. CLARAVIS [Suspect]
     Indication: SKIN DISORDER
     Dosage: 80 MG, QD, ORAL
     Route: 048
     Dates: start: 20080206, end: 20080701
  2. COUMADIN [Concomitant]

REACTIONS (2)
  - CARDIAC FAILURE [None]
  - DISEASE PROGRESSION [None]
